FAERS Safety Report 14296752 (Version 4)
Quarter: 2017Q4

REPORT INFORMATION
  Report Type: Report from Study
  Country: BR (occurrence: BR)
  Receive Date: 20171218
  Receipt Date: 20171225
  Transmission Date: 20180321
  Serious: Yes (Life-Threatening)
  Sender: FDA-Public Use
  Company Number: PHHY2017BR185407

PATIENT
  Age: 35 Year
  Sex: Male
  Weight: 66 kg

DRUGS (3)
  1. GILENYA [Interacting]
     Active Substance: FINGOLIMOD HYDROCHLORIDE
     Indication: MULTIPLE SCLEROSIS
     Dosage: 0.5 MG, QD
     Route: 048
     Dates: start: 20141211
  2. GILENYA [Interacting]
     Active Substance: FINGOLIMOD HYDROCHLORIDE
     Dosage: UNK, QOD
     Route: 065
     Dates: start: 20170701
  3. ATORVASTATIN [Suspect]
     Active Substance: ATORVASTATIN
     Indication: BLOOD CHOLESTEROL ABNORMAL
     Dosage: UNK
     Route: 048
     Dates: start: 201706

REACTIONS (9)
  - Blood cholesterol increased [Unknown]
  - Alanine aminotransferase increased [Recovered/Resolved]
  - Drug interaction [Recovered/Resolved]
  - Lymphocyte count decreased [Recovered/Resolved]
  - Feeling abnormal [Unknown]
  - Prescribed underdose [Unknown]
  - Malaise [Recovered/Resolved]
  - Depression [Not Recovered/Not Resolved]
  - Aspartate aminotransferase increased [Recovered/Resolved]

NARRATIVE: CASE EVENT DATE: 201706
